FAERS Safety Report 18339289 (Version 2)
Quarter: 2020Q4

REPORT INFORMATION
  Report Type: Spontaneous
  Country: SE (occurrence: SE)
  Receive Date: 20201002
  Receipt Date: 20201104
  Transmission Date: 20210113
  Serious: Yes (Hospitalization, Other)
  Sender: FDA-Public Use
  Company Number: SE-ALLERGAN-2037572US

PATIENT
  Sex: Female

DRUGS (1)
  1. BELKYRA [Suspect]
     Active Substance: DEOXYCHOLIC ACID
     Indication: FAT TISSUE INCREASED
     Dosage: UNK UNK, SINGLE
     Route: 058

REACTIONS (5)
  - Cardiac disorder [Not Recovered/Not Resolved]
  - Wrong product administered [Unknown]
  - Fat embolism [Unknown]
  - Chest pain [Unknown]
  - Myocardial infarction [Recovered/Resolved]
